FAERS Safety Report 5504791-8 (Version None)
Quarter: 2007Q4

REPORT INFORMATION
  Report Type: 
  Country: None (occurrence: None)
  Receive Date: 20071031
  Receipt Date: 20071031
  Transmission Date: 20080405
  Serious: Yes (Life-Threatening, Hospitalization)
  Sender: FDA-Public Use
  Company Number: None

PATIENT
  Sex: Female
  Weight: 71.6683 kg

DRUGS (3)
  1. CRESTOR [Suspect]
     Indication: DEMENTIA
     Dosage: CRESTOR 10 MG 1 TABLET DAILY ORAL
     Route: 048
     Dates: start: 20070101
  2. CRESTOR [Suspect]
     Indication: DYSLIPIDAEMIA
     Dosage: CRESTOR 10 MG 1 TABLET DAILY ORAL
     Route: 048
     Dates: start: 20070101
  3. CRESTOR [Suspect]
     Indication: HYPERTENSION
     Dosage: CRESTOR 10 MG 1 TABLET DAILY ORAL
     Route: 048
     Dates: start: 20070101

REACTIONS (1)
  - RHABDOMYOLYSIS [None]
